FAERS Safety Report 7629127-8 (Version None)
Quarter: 2011Q3

REPORT INFORMATION
  Report Type: 
  Country: None (occurrence: None)
  Receive Date: 20110715
  Receipt Date: 20110711
  Transmission Date: 20111222
  Serious: Yes (Hospitalization, Other)
  Sender: FDA-Public Use
  Company Number: 2011SP000364

PATIENT
  Age: 34 Year
  Sex: Female
  Weight: 115.2136 kg

DRUGS (8)
  1. CYTOMEL [Concomitant]
  2. NUVARING [Suspect]
     Indication: HORMONE REPLACEMENT THERAPY
     Dosage: QM
     Dates: start: 20081217, end: 20090111
  3. CELEXA [Concomitant]
  4. WELLBUTRIN XL [Concomitant]
  5. SYNTHROID [Concomitant]
  6. WOMEN'S MULTIVITAMIN (MULTIVITAMIN) [Concomitant]
  7. VIVELLE-DOT [Concomitant]
  8. PRILOSEC [Concomitant]

REACTIONS (26)
  - HEPATIC STEATOSIS [None]
  - NAUSEA [None]
  - ASTHENIA [None]
  - MENTAL DISORDER [None]
  - MUSCLE SPASMS [None]
  - PULMONARY INFARCTION [None]
  - HYPOAESTHESIA [None]
  - PEPTIC ULCER [None]
  - LIBIDO DECREASED [None]
  - DEEP VEIN THROMBOSIS [None]
  - HOT FLUSH [None]
  - SPINAL OSTEOARTHRITIS [None]
  - PULMONARY EMBOLISM [None]
  - ANXIETY [None]
  - ARTHRALGIA [None]
  - HIATUS HERNIA [None]
  - DIVERTICULUM [None]
  - HEART RATE IRREGULAR [None]
  - DEPRESSION [None]
  - DIZZINESS [None]
  - CHEST PAIN [None]
  - HYPERCOAGULATION [None]
  - DYSPEPSIA [None]
  - PAIN [None]
  - FATIGUE [None]
  - ATELECTASIS [None]
